FAERS Safety Report 6305073-7 (Version None)
Quarter: 2009Q3

REPORT INFORMATION
  Report Type: 
  Country: None (occurrence: None)
  Receive Date: 20090806
  Receipt Date: 20090727
  Transmission Date: 20100115
  Serious: Yes (Life-Threatening, Other)
  Sender: FDA-Public Use
  Company Number: 2008AL006878

PATIENT
  Age: 59 Year
  Sex: Female
  Weight: 113.3993 kg

DRUGS (10)
  1. DIGOXIN [Suspect]
     Indication: CARDIAC FAILURE CONGESTIVE
     Dosage: 0.25MG, DAILY, PO
     Route: 048
     Dates: start: 20080201
  2. DIGOXIN [Suspect]
     Indication: CARDIOMYOPATHY
     Dosage: 0.25MG, DAILY, PO
     Route: 048
     Dates: start: 20080201
  3. LAXIT [Concomitant]
  4. METOPROLOL [Concomitant]
  5. DIOVAN [Concomitant]
  6. POTASSIUM CHLORIDE [Concomitant]
  7. HYDRALAZINE HCL [Concomitant]
  8. FUROSEMIDE [Concomitant]
  9. DOXYCYCLINE [Concomitant]
  10. PROMETHAZINE [Concomitant]

REACTIONS (18)
  - ANXIETY [None]
  - ARRHYTHMIA [None]
  - DECREASED APPETITE [None]
  - DIABETES MELLITUS [None]
  - DRUG TOXICITY [None]
  - DRY MOUTH [None]
  - DYSGEUSIA [None]
  - EMOTIONAL DISORDER [None]
  - HEADACHE [None]
  - MULTIPLE INJURIES [None]
  - MUSCLE SPASMS [None]
  - NAUSEA [None]
  - OVERDOSE [None]
  - PAIN [None]
  - URINARY INCONTINENCE [None]
  - VISION BLURRED [None]
  - VISUAL IMPAIRMENT [None]
  - WEIGHT DECREASED [None]
